FAERS Safety Report 25079594 (Version 1)
Quarter: 2025Q1

REPORT INFORMATION
  Report Type: Spontaneous
  Country: US (occurrence: None)
  Receive Date: 20250314
  Receipt Date: 20250314
  Transmission Date: 20250409
  Serious: No
  Sender: FDA-CTU
  Company Number: None

PATIENT
  Age: 75 Year
  Sex: Male

DRUGS (1)
  1. ORGOVYX [Suspect]
     Active Substance: RELUGOLIX
     Dosage: FREQUENCY : DAILY;?
     Route: 048

REACTIONS (6)
  - Dizziness [None]
  - Blood sodium decreased [None]
  - Feeling abnormal [None]
  - Nausea [None]
  - Chest discomfort [None]
  - Throat tightness [None]
